FAERS Safety Report 26121539 (Version 1)
Quarter: 2025Q4

REPORT INFORMATION
  Report Type: Spontaneous
  Country: CN (occurrence: CN)
  Receive Date: 20251204
  Receipt Date: 20251204
  Transmission Date: 20260118
  Serious: Yes (Hospitalization)
  Sender: Medicap Laboratories
  Company Number: CN-Medicap-000108

PATIENT
  Age: 34 Year
  Sex: Male

DRUGS (3)
  1. ZOPICLONE [Suspect]
     Active Substance: ZOPICLONE
     Indication: Depression
     Dosage: ZOPICLONE NIGHTLY
     Route: 065
     Dates: start: 202403
  2. PIRACETAM [Suspect]
     Active Substance: PIRACETAM
     Indication: Depression
     Route: 065
     Dates: start: 20240331
  3. VENLAFAXINE [Suspect]
     Active Substance: VENLAFAXINE HYDROCHLORIDE
     Indication: Depression
     Route: 065
     Dates: start: 20240331, end: 20240401

REACTIONS (1)
  - Drug ineffective [Unknown]
